FAERS Safety Report 9670480 (Version 5)
Quarter: 2014Q4

REPORT INFORMATION
  Report Type: Report from Study
  Country: SK (occurrence: SK)
  Receive Date: 20131106
  Receipt Date: 20141223
  Transmission Date: 20150529
  Serious: Yes (Life-Threatening, Hospitalization, Disabling)
  Sender: FDA-Public Use
  Company Number: SK-ROCHE-1299577

PATIENT
  Age: 72 Year
  Sex: Male
  Weight: 95.11 kg

DRUGS (24)
  1. RANIBIZUMAB [Suspect]
     Active Substance: RANIBIZUMAB
     Route: 050
     Dates: start: 20131024
  2. RANIBIZUMAB [Suspect]
     Active Substance: RANIBIZUMAB
     Route: 050
     Dates: start: 20140414, end: 20140414
  3. DETRALEX [Concomitant]
     Active Substance: DIOSMIN\HESPERIDIN
     Route: 065
     Dates: start: 2008
  4. DIAPREL [Concomitant]
     Active Substance: GLICLAZIDE
     Route: 065
     Dates: start: 2005
  5. NEBILET [Concomitant]
     Active Substance: NEBIVOLOL
     Route: 065
     Dates: start: 20130820
  6. PROPAFENONE HYDROCHLORIDE. [Concomitant]
     Active Substance: PROPAFENONE HYDROCHLORIDE
     Route: 065
     Dates: start: 2009
  7. TEZEO [Concomitant]
     Route: 065
     Dates: start: 20130817
  8. RANIBIZUMAB [Suspect]
     Active Substance: RANIBIZUMAB
     Indication: DIABETIC RETINAL OEDEMA
     Route: 050
     Dates: start: 20130322
  9. RANIBIZUMAB [Suspect]
     Active Substance: RANIBIZUMAB
     Dosage: LEFT EYE
     Route: 050
     Dates: start: 20130815
  10. DIAPREL [Concomitant]
     Active Substance: GLICLAZIDE
     Route: 065
     Dates: start: 20130819
  11. VESSEL DUE F [Concomitant]
     Active Substance: SULODEXIDE
     Route: 065
     Dates: start: 20130819
  12. GLUCOPHAGE [Concomitant]
     Active Substance: METFORMIN HYDROCHLORIDE
     Route: 065
     Dates: start: 2003
  13. VESSEL DUE F [Concomitant]
     Active Substance: SULODEXIDE
     Route: 065
     Dates: start: 2006
  14. ACIDUM FOLICUM [Concomitant]
     Active Substance: FOLIC ACID
     Route: 065
     Dates: start: 2012
  15. PROPAFENONE HYDROCHLORIDE. [Concomitant]
     Active Substance: PROPAFENONE HYDROCHLORIDE
     Route: 065
     Dates: start: 20130817
  16. GLUCOPHAGE [Concomitant]
     Active Substance: METFORMIN HYDROCHLORIDE
     Route: 065
     Dates: start: 20130817
  17. ACIDUM FOLICUM [Concomitant]
     Active Substance: FOLIC ACID
     Route: 065
     Dates: start: 20130819
  18. DETRALEX [Concomitant]
     Active Substance: DIOSMIN\HESPERIDIN
     Route: 065
     Dates: start: 20130817
  19. PURODIGIN [Concomitant]
     Route: 065
     Dates: start: 2003
  20. TEZEO [Concomitant]
     Route: 065
     Dates: start: 2009
  21. ANOPYRIN [Concomitant]
     Active Substance: ASPIRIN
     Route: 065
     Dates: start: 20130817
  22. CITALOPRAM [Concomitant]
     Active Substance: CITALOPRAM HYDROBROMIDE
     Route: 065
     Dates: start: 2005
  23. CITALOPRAM [Concomitant]
     Active Substance: CITALOPRAM HYDROBROMIDE
     Route: 065
     Dates: start: 20130817
  24. ANOPYRIN [Concomitant]
     Active Substance: ASPIRIN
     Route: 065
     Dates: start: 2007

REACTIONS (7)
  - Myocardial infarction [Recovered/Resolved]
  - Hypercholesterolaemia [Unknown]
  - Chest discomfort [Unknown]
  - Glycosylated haemoglobin increased [Unknown]
  - Myocardial ischaemia [Not Recovered/Not Resolved]
  - Angina unstable [Unknown]
  - Carotid sinus syndrome [Unknown]

NARRATIVE: CASE EVENT DATE: 20130817
